FAERS Safety Report 10172002 (Version 2)
Quarter: 2014Q2

REPORT INFORMATION
  Report Type: Spontaneous
  Country: US (occurrence: US)
  Receive Date: 20140515
  Receipt Date: 20140612
  Transmission Date: 20141212
  Serious: Yes (Other)
  Sender: FDA-Public Use
  Company Number: US-PFIZER INC-2014129565

PATIENT
  Age: 46 Year
  Sex: Female
  Weight: 58.96 kg

DRUGS (6)
  1. LYRICA [Suspect]
     Indication: DIABETIC NEUROPATHY
     Dosage: 200 MG, 3X/DAY
     Route: 048
  2. LYRICA [Suspect]
     Dosage: 200 MG, 2X/DAY
     Route: 048
  3. OXYCONTIN [Concomitant]
     Indication: ARTHRALGIA
     Dosage: 80 MG, DAILY
  4. OXYCONTIN [Concomitant]
     Indication: BACK PAIN
     Dosage: 30 MG, 2X/DAY
  5. OXYCODONE [Concomitant]
     Indication: ARTHRALGIA
     Dosage: 15 MG, 3X/DAY
  6. OXYCODONE [Concomitant]
     Indication: BACK PAIN

REACTIONS (1)
  - Osteonecrosis [Unknown]
